FAERS Safety Report 6120302-0 (Version None)
Quarter: 2009Q1

REPORT INFORMATION
  Report Type: 
  Country: None (occurrence: None)
  Receive Date: 20090312
  Receipt Date: 20090225
  Transmission Date: 20090719
  Serious: Yes (Hospitalization)
  Sender: FDA-Public Use
  Company Number: 2009S1003485

PATIENT
  Age: 80 Year
  Sex: Female
  Weight: 75 kg

DRUGS (3)
  1. TRAMADOL HCL [Suspect]
     Indication: PAIN
     Dosage: ORAL
     Route: 048
     Dates: start: 20081207
  2. UNACID (UNACID  00917901/) (0.2 ML) [Suspect]
     Indication: SKIN ULCER
     Dosage: 0.2 ML; DAILY; INTRAVENOUS
     Route: 042
     Dates: start: 20081204, end: 20081223
  3. CLEXANE [Concomitant]

REACTIONS (2)
  - DELIRIUM [None]
  - HALLUCINATION [None]
